FAERS Safety Report 6418178-7 (Version None)
Quarter: 2009Q4

REPORT INFORMATION
  Report Type: 
  Country: None (occurrence: None)
  Receive Date: 20091028
  Receipt Date: 20091021
  Transmission Date: 20100525
  Serious: Yes (Hospitalization)
  Sender: FDA-Public Use
  Company Number: TR-ELI_LILLY_AND_COMPANY-TR200910005310

PATIENT
  Sex: Male

DRUGS (6)
  1. HUMALOG [Suspect]
     Indication: DIABETES MELLITUS
     Dosage: 25 U, EACH MORNING
     Route: 058
     Dates: start: 20070101
  2. HUMALOG [Suspect]
     Dosage: 30 U, EACH NOON
     Route: 058
     Dates: start: 20070101
  3. HUMALOG [Suspect]
     Dosage: 25 U, EACH EVENING
     Route: 058
     Dates: start: 20070101
  4. NEURONTIN [Concomitant]
     Dosage: 800 MG, 3/D
     Route: 065
  5. INSULIN [Concomitant]
     Indication: DIABETES MELLITUS
     Dosage: UNK, EACH EVENING
     Route: 065
  6. ANTIHYPERTENSIVES [Concomitant]
     Indication: HYPERTENSION
     Dosage: 1.5 MG, DAILY (1/D)
     Route: 065

REACTIONS (4)
  - BLOOD GLUCOSE INCREASED [None]
  - OEDEMA PERIPHERAL [None]
  - SPEECH DISORDER [None]
  - SWELLING FACE [None]
